FAERS Safety Report 7245116-X (Version None)
Quarter: 2011Q1

REPORT INFORMATION
  Report Type: 
  Country: None (occurrence: None)
  Receive Date: 20110126
  Receipt Date: 20101201
  Transmission Date: 20110831
  Serious: Yes (Other)
  Sender: FDA-Public Use
  Company Number: FR-SANOFI-AVENTIS-2010SA073111

PATIENT
  Age: 65 Year
  Sex: Male
  Weight: 94 kg

DRUGS (5)
  1. COUMADIN [Concomitant]
     Route: 048
     Dates: start: 20000101
  2. MULTAQ [Suspect]
     Indication: ATRIAL FIBRILLATION
     Route: 048
     Dates: start: 20101106, end: 20101130
  3. EZETROL [Concomitant]
     Route: 048
     Dates: start: 20100301
  4. EUPANTOL [Concomitant]
     Route: 048
     Dates: start: 20080101
  5. ATENOLOL [Concomitant]
     Indication: ARRHYTHMIA
     Route: 048
     Dates: start: 20050101

REACTIONS (2)
  - HEPATOCELLULAR INJURY [None]
  - CHOLESTASIS [None]
